FAERS Safety Report 5532491-7 (Version None)
Quarter: 2007Q4

REPORT INFORMATION
  Report Type: 
  Country: None (occurrence: None)
  Receive Date: 20071203
  Receipt Date: 20071121
  Transmission Date: 20080405
  Serious: Yes (Other)
  Sender: FDA-Public Use
  Company Number: JP-PFIZER INC-2007098651

PATIENT
  Age: 67 Year
  Sex: Male

DRUGS (2)
  1. VIAGRA [Suspect]
     Route: 048
     Dates: start: 20061001, end: 20061101
  2. ANTICOAGULANTS [Concomitant]
     Indication: ATRIAL FIBRILLATION

REACTIONS (6)
  - METAMORPHOPSIA [None]
  - OVERDOSE [None]
  - POLYPOIDAL CHOROIDAL VASCULOPATHY [None]
  - RETINAL DETACHMENT [None]
  - RETINAL HAEMORRHAGE [None]
  - VISUAL ACUITY REDUCED [None]
